FAERS Safety Report 7038465-1 (Version None)
Quarter: 2010Q4

REPORT INFORMATION
  Report Type: 
  Country: None (occurrence: None)
  Receive Date: 20101011
  Receipt Date: 20100121
  Transmission Date: 20110411
  Serious: No
  Sender: FDA-Public Use
  Company Number: US-PFIZER INC-2010008645

PATIENT
  Sex: Female

DRUGS (10)
  1. MACRODANTIN [Suspect]
  2. GABAPENTIN [Suspect]
  3. NORVASC [Suspect]
  4. VERAPAMIL HCL [Suspect]
  5. OMNICEF [Suspect]
  6. CEFADROXIL [Suspect]
  7. BENICAR [Suspect]
  8. LEVAQUIN [Suspect]
  9. NORTRIPTYLINE [Suspect]
  10. DIOVAN [Suspect]

REACTIONS (1)
  - PRURITUS [None]
